FAERS Safety Report 9288940 (Version 2)
Quarter: 2013Q3

REPORT INFORMATION
  Report Type: Report from Study
  Country: US (occurrence: US)
  Receive Date: 20130514
  Receipt Date: 20130821
  Transmission Date: 20140515
  Serious: Yes (Other)
  Sender: FDA-Public Use
  Company Number: US-ABBOTT-13P-163-1088191-00

PATIENT
  Age: 25 Year
  Sex: Female

DRUGS (5)
  1. HUMIRA [Suspect]
     Indication: CROHN^S DISEASE
     Dates: start: 20130426, end: 20130426
  2. HUMIRA [Suspect]
     Dosage: EVERY OTHER THURSDAY
     Route: 058
     Dates: start: 20130426
  3. AZATHIOPRINE [Concomitant]
     Indication: CROHN^S DISEASE
     Dosage: 2 TABLETS DAILY
  4. BIRTH CONTROL PILL [Concomitant]
     Indication: PRODUCT USED FOR UNKNOWN INDICATION
     Dosage: DAILY
  5. ENTOCORT [Concomitant]
     Indication: CROHN^S DISEASE
     Dosage: 2 TABLETS DAILY (WILL BE TAPERING DOWN ON FRIDAY TO ONE PILL DAILY)

REACTIONS (8)
  - Deafness [Recovered/Resolved]
  - Blindness [Recovered/Resolved]
  - Presyncope [Recovered/Resolved]
  - Injection site pain [Recovered/Resolved]
  - Injection site pain [Recovered/Resolved]
  - Injection site pain [Recovered/Resolved]
  - Injection site pain [Recovered/Resolved]
  - Injection site pain [Not Recovered/Not Resolved]
